FAERS Safety Report 6054884-4 (Version None)
Quarter: 2009Q1

REPORT INFORMATION
  Report Type: 
  Country: None (occurrence: None)
  Receive Date: 20090128
  Receipt Date: 20080723
  Transmission Date: 20090719
  Serious: Yes (Death)
  Sender: FDA-Public Use
  Company Number: AT-JNJFOC-20080705612

PATIENT

DRUGS (4)
  1. RISPERDAL CONSTA [Suspect]
     Indication: DRUG EXPOSURE DURING PREGNANCY
     Route: 064
  2. RISPERDAL [Suspect]
     Indication: DRUG USE FOR UNKNOWN INDICATION
     Route: 064
  3. TRESLEEN [Concomitant]
     Route: 064
  4. CLOZAPINE [Concomitant]
     Route: 064

REACTIONS (1)
  - FOETAL GROWTH RETARDATION [None]
